FAERS Safety Report 8986469 (Version 5)
Quarter: 2013Q3

REPORT INFORMATION
  Report Type: Report from Study
  Country: US (occurrence: US)
  Receive Date: 20121227
  Receipt Date: 20130722
  Transmission Date: 20140515
  Serious: Yes (Hospitalization, Other)
  Sender: FDA-Public Use
  Company Number: PHHO2012US017603

PATIENT
  Age: 31 Year
  Sex: Female
  Weight: 104.49 kg

DRUGS (4)
  1. AIN457 [Suspect]
     Indication: ANKYLOSING SPONDYLITIS
     Dosage: 75 MG, UNK
     Route: 058
     Dates: start: 20120521, end: 20121130
  2. SERTRALINE [Suspect]
  3. SPRINTEC [Suspect]
  4. BENADRYL [Concomitant]
     Indication: HYPERSENSITIVITY
     Dosage: 50 MG, PRN
     Route: 048
     Dates: end: 20121203

REACTIONS (2)
  - Dyspnoea [Recovered/Resolved]
  - Goitre [Recovered/Resolved]
